FAERS Safety Report 8756594 (Version 2)
Quarter: 2013Q4

REPORT INFORMATION
  Report Type: Spontaneous
  Country: US (occurrence: US)
  Receive Date: 20120828
  Receipt Date: 20131101
  Transmission Date: 20140711
  Serious: No
  Sender: FDA-Public Use
  Company Number: US-009507513-1208USA009237

PATIENT
  Sex: 0

DRUGS (1)
  1. FOSAMAX [Suspect]
     Dosage: 70 MG, QD
     Route: 048

REACTIONS (3)
  - Overdose [Unknown]
  - Overdose [Unknown]
  - No adverse event [Unknown]
